FAERS Safety Report 4648877-9 (Version None)
Quarter: 2005Q2

REPORT INFORMATION
  Report Type: 
  Country: None (occurrence: None)
  Receive Date: 20050427
  Receipt Date: 20050413
  Transmission Date: 20051028
  Serious: Yes (Other)
  Sender: FDA-Public Use
  Company Number: USA040773844

PATIENT
  Age: 75 Year
  Sex: Male

DRUGS (11)
  1. FORTEO [Suspect]
     Indication: OSTEOPOROSIS
     Dosage: 20 UG DAY
     Dates: start: 20040501
  2. OXYGEN [Concomitant]
  3. THEOPHYLLINE [Concomitant]
  4. ENALAPRIL [Concomitant]
  5. PROTONIX [Concomitant]
  6. POTASSIUM CHLORIDE [Concomitant]
  7. CALCIUM CARBONATE [Concomitant]
  8. VITAMIN D [Concomitant]
  9. LEXAPRO [Concomitant]
  10. PROPRANOLOL [Concomitant]
  11. SINGULAIR (MONTELUKAST) [Concomitant]

REACTIONS (13)
  - CONVULSION [None]
  - ERYTHEMA [None]
  - FEELING HOT [None]
  - INJECTION SITE HAEMORRHAGE [None]
  - INJECTION SITE IRRITATION [None]
  - INJECTION SITE PAIN [None]
  - LOSS OF CONSCIOUSNESS [None]
  - MALAISE [None]
  - MUSCLE SPASMS [None]
  - MUSCULOSKELETAL DISORDER [None]
  - PHARMACEUTICAL PRODUCT COMPLAINT [None]
  - SKIN EXFOLIATION [None]
  - SKIN TIGHTNESS [None]
